FAERS Safety Report 26026512 (Version 1)
Quarter: 2025Q4

REPORT INFORMATION
  Report Type: Spontaneous
  Country: US (occurrence: US)
  Receive Date: 20251111
  Receipt Date: 20251111
  Transmission Date: 20260118
  Serious: No
  Sender: SANOFI AVENTIS
  Company Number: US-SA-2025SA333679

PATIENT
  Sex: Female
  Weight: 53.29 kg

DRUGS (1)
  1. DUPIXENT [Suspect]
     Active Substance: DUPILUMAB
     Indication: Dermatitis atopic
     Dosage: 200 MG, QOW
     Route: 058

REACTIONS (9)
  - Dry skin [Unknown]
  - Swelling [Unknown]
  - Rash erythematous [Unknown]
  - Feeling hot [Unknown]
  - Rash pruritic [Unknown]
  - Eyelid margin crusting [Unknown]
  - Eye irritation [Unknown]
  - Dermatitis atopic [Unknown]
  - Product dose omission issue [Unknown]
